FAERS Safety Report 8850047 (Version 3)
Quarter: 2013Q2

REPORT INFORMATION
  Report Type: Spontaneous
  Country: BR (occurrence: BR)
  Receive Date: 20121019
  Receipt Date: 20130520
  Transmission Date: 20140414
  Serious: Yes (Other)
  Sender: FDA-Public Use
  Company Number: BR-BAYER-2012-107943

PATIENT
  Age: 32 Year
  Sex: Female

DRUGS (1)
  1. MIRENA [Suspect]
     Indication: CONTRACEPTION
     Dosage: 20 ?G/D, CONT
     Route: 015
     Dates: start: 20100430, end: 201212

REACTIONS (14)
  - Abdominal pain [None]
  - Amenorrhoea [Recovered/Resolved]
  - Ectopic pregnancy with intrauterine device [Recovered/Resolved]
  - Drug ineffective [None]
  - Ruptured ectopic pregnancy [Recovered/Resolved]
  - Genital haemorrhage [Recovered/Resolved]
  - Genital haemorrhage [Recovered/Resolved]
  - Asthenia [Recovered/Resolved]
  - Syncope [Recovered/Resolved]
  - Intra-abdominal haemorrhage [None]
  - Peritoneal haemorrhage [None]
  - Haemorrhagic anaemia [None]
  - Device dislocation [None]
  - Uterine leiomyoma [None]
